FAERS Safety Report 19455954 (Version 1)
Quarter: 2021Q2

REPORT INFORMATION
  Report Type: Spontaneous
  Country: US (occurrence: US)
  Receive Date: 20210624
  Receipt Date: 20210624
  Transmission Date: 20210717
  Serious: No
  Sender: FDA-Public Use
  Company Number: US-DSJP-DSU-2016-115273

PATIENT
  Sex: Female
  Weight: 77.1 kg

DRUGS (11)
  1. BENICAR [Suspect]
     Active Substance: OLMESARTAN MEDOXOMIL
     Indication: HYPERTENSION
     Dosage: 5 MG, QD
     Route: 048
     Dates: end: 2013
  2. BENICAR [Suspect]
     Active Substance: OLMESARTAN MEDOXOMIL
     Dosage: 1/2 (20 MG) TABLET, QD
     Route: 048
     Dates: start: 2013, end: 2016
  3. BENICAR [Suspect]
     Active Substance: OLMESARTAN MEDOXOMIL
     Dosage: 15 MG (1/2 OF 20 MG AND 5 MG), QD
     Route: 048
     Dates: start: 2016
  4. BENICAR [Suspect]
     Active Substance: OLMESARTAN MEDOXOMIL
     Dosage: 20 MG, QD (ONE TABLET DAILY
     Route: 048
  5. BENICAR [Suspect]
     Active Substance: OLMESARTAN MEDOXOMIL
     Dosage: 10 MG, QD (2?5MG TABLETS)
     Route: 048
  6. BENICAR [Suspect]
     Active Substance: OLMESARTAN MEDOXOMIL
     Dosage: 15 MG, QD (3 ?5MG TABLETS)
     Route: 048
  7. ATIVAN [Suspect]
     Active Substance: LORAZEPAM
     Dosage: 1/4 TABLET, QD (QAM)
     Route: 048
     Dates: start: 2016
  8. ATIVAN [Suspect]
     Active Substance: LORAZEPAM
     Indication: NERVOUSNESS
     Dosage: 1/2 TABLET, QD (QAM)
     Route: 048
     Dates: start: 2016, end: 2016
  9. SINGULAIR [Concomitant]
     Active Substance: MONTELUKAST SODIUM
     Indication: ASTHMA
     Dosage: UNK
     Route: 065
  10. PULMICORT TURBUHALER [Concomitant]
     Active Substance: BUDESONIDE
     Indication: ASTHMA
     Dosage: UNK
     Route: 065
  11. MULTIVITAMINS                      /00116001/ [Concomitant]
     Active Substance: VITAMINS
     Indication: PRODUCT USED FOR UNKNOWN INDICATION
     Dosage: UNK
     Route: 065

REACTIONS (10)
  - Depressed mood [Not Recovered/Not Resolved]
  - Dizziness [Recovered/Resolved]
  - Nervousness [Not Recovered/Not Resolved]
  - Cold sweat [Unknown]
  - Hyperhidrosis [Unknown]
  - Fatigue [Not Recovered/Not Resolved]
  - Blood pressure increased [Recovered/Resolved]
  - Therapeutic response decreased [Not Recovered/Not Resolved]
  - Off label use [Recovered/Resolved]
  - Joint swelling [Recovered/Resolved]

NARRATIVE: CASE EVENT DATE: 2013
